FAERS Safety Report 17463728 (Version 1)
Quarter: 2020Q1

REPORT INFORMATION
  Report Type: Report from Study
  Country: US (occurrence: US)
  Receive Date: 20200226
  Receipt Date: 20200226
  Transmission Date: 20200409
  Serious: No
  Sender: FDA-Public Use
  Company Number: US-DOVA PHARMACEUTICALS INC.-DOV-000392

PATIENT
  Age: 71 Year
  Sex: Female

DRUGS (2)
  1. DOPTELET [Suspect]
     Active Substance: AVATROMBOPAG MALEATE
     Indication: IMMUNE THROMBOCYTOPENIC PURPURA
     Dosage: 20 MG, QD
     Route: 048
     Dates: start: 20191211, end: 20191213
  2. DOPTELET [Suspect]
     Active Substance: AVATROMBOPAG MALEATE
     Dosage: 20 MG, QD
     Route: 048
     Dates: start: 20200101

REACTIONS (2)
  - Nonspecific reaction [Unknown]
  - Platelet count increased [Recovering/Resolving]

NARRATIVE: CASE EVENT DATE: 20191211
